FAERS Safety Report 6937667-X (Version None)
Quarter: 2010Q3

REPORT INFORMATION
  Report Type: 
  Country: None (occurrence: None)
  Receive Date: 20100820
  Receipt Date: 20100820
  Transmission Date: 20110219
  Serious: Yes (Other)
  Sender: FDA-Public Use
  Company Number: None

PATIENT
  Sex: Female

DRUGS (1)
  1. OMNIPAQUE 350 [Suspect]
     Indication: COMPUTERISED TOMOGRAM
     Dosage: 100 ML

REACTIONS (3)
  - CONTRAST MEDIA ALLERGY [None]
  - ERYTHEMA [None]
  - URTICARIA [None]
